FAERS Safety Report 14969745 (Version 19)
Quarter: 2024Q3

REPORT INFORMATION
  Report Type: Spontaneous
  Country: FR (occurrence: FR)
  Receive Date: 20180604
  Receipt Date: 20240925
  Transmission Date: 20241017
  Serious: Yes (Other)
  Sender: BAUSCH AND LOMB
  Company Number: FR-UCBSA-2018013909

PATIENT
  Sex: Female
  Weight: 77 kg

DRUGS (78)
  1. METFORMIN HYDROCHLORIDE [Suspect]
     Active Substance: METFORMIN HYDROCHLORIDE
     Indication: Type 2 diabetes mellitus
     Dosage: DURATION: 4 MONTHS 26 DAYS
     Route: 048
     Dates: start: 20160930, end: 20170224
  2. METFORMIN HYDROCHLORIDE [Suspect]
     Active Substance: METFORMIN HYDROCHLORIDE
     Route: 065
  3. METFORMIN HYDROCHLORIDE [Suspect]
     Active Substance: METFORMIN HYDROCHLORIDE
     Indication: Type 2 diabetes mellitus
     Route: 065
  4. METFORMIN HYDROCHLORIDE [Suspect]
     Active Substance: METFORMIN HYDROCHLORIDE
     Route: 065
     Dates: start: 20160930
  5. METFORMIN HYDROCHLORIDE [Suspect]
     Active Substance: METFORMIN HYDROCHLORIDE
     Route: 065
     Dates: start: 20170224
  6. RAMIPRIL [Suspect]
     Active Substance: RAMIPRIL
     Indication: Hypertension
     Dosage: DURATION: 4 MONTHS 26 DAYS
     Route: 048
     Dates: start: 20160930, end: 20170224
  7. RAMIPRIL [Suspect]
     Active Substance: RAMIPRIL
     Route: 048
     Dates: start: 20170224
  8. TRAMADOL HYDROCHLORIDE [Suspect]
     Active Substance: TRAMADOL HYDROCHLORIDE
     Indication: Diabetic neuropathy
     Dosage: 5 MONTHS 5 DAYS
     Route: 065
     Dates: start: 20160930, end: 20170306
  9. TRAMADOL HYDROCHLORIDE [Suspect]
     Active Substance: TRAMADOL HYDROCHLORIDE
     Route: 065
     Dates: start: 20170306
  10. TRAMADOL HYDROCHLORIDE [Suspect]
     Active Substance: TRAMADOL HYDROCHLORIDE
     Route: 065
     Dates: start: 20170930
  11. HUMALOG [Suspect]
     Active Substance: INSULIN LISPRO
     Indication: Type 2 diabetes mellitus
     Route: 065
     Dates: start: 20170224, end: 20170224
  12. HUMALOG [Suspect]
     Active Substance: INSULIN LISPRO
     Route: 065
     Dates: start: 20170224
  13. HUMALOG [Suspect]
     Active Substance: INSULIN LISPRO
     Route: 065
     Dates: start: 20240914
  14. LANTUS [Suspect]
     Active Substance: INSULIN GLARGINE
     Indication: Type 2 diabetes mellitus
     Route: 048
     Dates: start: 20170224
  15. LANTUS [Suspect]
     Active Substance: INSULIN GLARGINE
     Route: 065
     Dates: start: 20170914
  16. GABAPENTIN [Suspect]
     Active Substance: GABAPENTIN
     Indication: Diabetic neuropathy
     Route: 048
     Dates: start: 20160930
  17. GABAPENTIN [Suspect]
     Active Substance: GABAPENTIN
     Route: 048
     Dates: start: 20160930
  18. GABAPENTIN [Suspect]
     Active Substance: GABAPENTIN
     Route: 048
     Dates: start: 20160930
  19. NICOPATCH [Suspect]
     Active Substance: NICOTINE
     Indication: Ex-tobacco user
     Dosage: DURATION: 2 MONTHS 23 DAYS
     Route: 065
     Dates: start: 20170224, end: 20170516
  20. NICOPATCH [Suspect]
     Active Substance: NICOTINE
     Route: 065
     Dates: start: 20170224
  21. NICOPATCH [Suspect]
     Active Substance: NICOTINE
     Route: 065
     Dates: start: 20170516
  22. NICARDIPINE HYDROCHLORIDE [Suspect]
     Active Substance: NICARDIPINE HYDROCHLORIDE
     Indication: Hypertension
     Dosage: UNK, 50MG FORME LP X2/J
     Route: 065
  23. NICARDIPINE HYDROCHLORIDE [Suspect]
     Active Substance: NICARDIPINE HYDROCHLORIDE
     Dosage: 100 (UNITS: UNKNOWN)
     Route: 065
     Dates: start: 20170313, end: 20180405
  24. FOLIC ACID [Suspect]
     Active Substance: FOLIC ACID
     Indication: Normochromic normocytic anaemia
     Route: 065
     Dates: start: 20170224, end: 20170313
  25. FOLIC ACID [Suspect]
     Active Substance: FOLIC ACID
     Dosage: ACIDE FOLIQUE
     Route: 065
     Dates: start: 20170313
  26. FOLIC ACID [Suspect]
     Active Substance: FOLIC ACID
     Dosage: ACIDE FOLIQUE
     Route: 065
     Dates: start: 20170224
  27. FOLIC ACID [Suspect]
     Active Substance: FOLIC ACID
     Route: 065
     Dates: start: 20170914
  28. CHLORPROMAZINE [Suspect]
     Active Substance: CHLORPROMAZINE
     Indication: Bipolar I disorder
     Route: 065
     Dates: start: 20170720
  29. CHLORPROMAZINE [Suspect]
     Active Substance: CHLORPROMAZINE
     Route: 065
  30. FERROUS SULFATE [Suspect]
     Active Substance: FERROUS SULFATE
     Indication: Normochromic normocytic anaemia
     Route: 065
     Dates: start: 20170313
  31. FERROUS SULFATE [Suspect]
     Active Substance: FERROUS SULFATE
     Route: 065
     Dates: start: 20170914
  32. AMITRIPTYLINE HYDROCHLORIDE [Suspect]
     Active Substance: AMITRIPTYLINE HYDROCHLORIDE
     Indication: Diabetic neuropathy
     Route: 065
     Dates: start: 20160930
  33. AMITRIPTYLINE HYDROCHLORIDE [Suspect]
     Active Substance: AMITRIPTYLINE HYDROCHLORIDE
     Route: 065
     Dates: start: 20170914
  34. ARIPIPRAZOLE [Suspect]
     Active Substance: ARIPIPRAZOLE
     Indication: Bipolar I disorder
     Dosage: DURATION: 4 MONTHS 26 DAYS
     Route: 065
     Dates: start: 20160930, end: 20170224
  35. ARIPIPRAZOLE [Suspect]
     Active Substance: ARIPIPRAZOLE
     Route: 065
     Dates: start: 20170224
  36. LABETALOL HYDROCHLORIDE [Suspect]
     Active Substance: LABETALOL\LABETALOL HYDROCHLORIDE
     Indication: Hypertension
     Route: 065
     Dates: start: 20170516
  37. GLICLAZIDE [Suspect]
     Active Substance: GLICLAZIDE
     Indication: Type 2 diabetes mellitus
     Dosage: DURATION: 4 MONTHS 26 DAYS
     Route: 065
     Dates: start: 20160930, end: 20170224
  38. GLICLAZIDE [Suspect]
     Active Substance: GLICLAZIDE
     Route: 065
     Dates: start: 20170224
  39. POLYETHYLENE GLYCOL 4000 [Suspect]
     Active Substance: POLYETHYLENE GLYCOL 4000
     Indication: Constipation
     Dosage: DURATION: 6 MONTHS 7 DAYS
     Route: 065
     Dates: start: 20160930, end: 20170405
  40. POLYETHYLENE GLYCOL 4000 [Suspect]
     Active Substance: POLYETHYLENE GLYCOL 4000
     Indication: Normochromic normocytic anaemia
     Route: 065
     Dates: start: 20170405
  41. POLYETHYLENE GLYCOL 4000 [Suspect]
     Active Substance: POLYETHYLENE GLYCOL 4000
     Route: 065
     Dates: start: 20170224
  42. AMOXICILLIN [Suspect]
     Active Substance: AMOXICILLIN
     Indication: Product used for unknown indication
     Route: 048
     Dates: start: 20170804, end: 20170811
  43. AMOXICILLIN [Suspect]
     Active Substance: AMOXICILLIN
     Route: 065
     Dates: start: 20170804
  44. AMOXICILLIN [Suspect]
     Active Substance: AMOXICILLIN
     Route: 065
     Dates: start: 20170811
  45. AMOXICILLIN [Suspect]
     Active Substance: AMOXICILLIN
     Dosage: AMOXICILLIN SODIUM
     Route: 065
     Dates: start: 20170811
  46. INSULIN NOS [Suspect]
     Active Substance: INSULIN NOS
     Indication: Type 2 diabetes mellitus
     Dosage: 1 MONTHS 26 DAYS
     Route: 065
     Dates: start: 20161230, end: 20170224
  47. POTASSIUM CHLORIDE [Suspect]
     Active Substance: POTASSIUM CHLORIDE
     Indication: Hypokalaemia
     Route: 065
     Dates: start: 20170804
  48. POTASSIUM CHLORIDE [Suspect]
     Active Substance: POTASSIUM CHLORIDE
     Route: 065
     Dates: start: 20170804
  49. POTASSIUM CHLORIDE [Suspect]
     Active Substance: POTASSIUM CHLORIDE
     Route: 065
  50. POTASSIUM CHLORIDE [Suspect]
     Active Substance: POTASSIUM CHLORIDE
     Route: 065
  51. POTASSIUM CHLORIDE [Suspect]
     Active Substance: POTASSIUM CHLORIDE
     Route: 065
     Dates: start: 20170804
  52. NICARDIPINE HYDROCHLORIDE [Suspect]
     Active Substance: NICARDIPINE HYDROCHLORIDE
     Indication: Hypertension
     Dosage: DURATION: 1 YEAR 24 DAYS
     Route: 065
     Dates: start: 20170313, end: 20180405
  53. NICARDIPINE HYDROCHLORIDE [Suspect]
     Active Substance: NICARDIPINE HYDROCHLORIDE
     Route: 065
     Dates: start: 20170313, end: 20170405
  54. NICARDIPINE HYDROCHLORIDE [Suspect]
     Active Substance: NICARDIPINE HYDROCHLORIDE
     Route: 065
  55. NICARDIPINE HYDROCHLORIDE [Suspect]
     Active Substance: NICARDIPINE HYDROCHLORIDE
     Route: 065
     Dates: start: 20180405
  56. NICARDIPINE HYDROCHLORIDE [Suspect]
     Active Substance: NICARDIPINE HYDROCHLORIDE
     Route: 065
     Dates: start: 20170405
  57. NICARDIPINE HYDROCHLORIDE [Suspect]
     Active Substance: NICARDIPINE HYDROCHLORIDE
     Dosage: NICARDIPINE
     Route: 065
     Dates: start: 20170914
  58. LEVEMIR [Suspect]
     Active Substance: INSULIN DETEMIR
     Indication: Type 2 diabetes mellitus
     Dosage: DURATION: 4 MONTHS 26 DAYS
     Route: 065
     Dates: start: 20160930, end: 20170224
  59. LEVEMIR [Suspect]
     Active Substance: INSULIN DETEMIR
     Dosage: DURATION: 4 MONTHS 26 DAYS
     Route: 065
     Dates: start: 20160930
  60. LEVEMIR [Suspect]
     Active Substance: INSULIN DETEMIR
     Route: 065
     Dates: start: 20170224
  61. FUROSEMIDE [Suspect]
     Active Substance: FUROSEMIDE
     Indication: Hypertension
     Route: 065
  62. FUROSEMIDE [Suspect]
     Active Substance: FUROSEMIDE
     Route: 065
  63. LEUCOVORIN [Suspect]
     Active Substance: LEUCOVORIN\LEUCOVORIN CALCIUM
     Indication: Normochromic normocytic anaemia
     Route: 065
     Dates: start: 20170313
  64. LEUCOVORIN [Suspect]
     Active Substance: LEUCOVORIN\LEUCOVORIN CALCIUM
     Route: 065
     Dates: start: 20170224, end: 20170313
  65. LEUCOVORIN [Suspect]
     Active Substance: LEUCOVORIN\LEUCOVORIN CALCIUM
     Route: 065
     Dates: start: 20170224
  66. METHYLDOPA [Suspect]
     Active Substance: METHYLDOPA
     Indication: Hypertension
     Route: 048
     Dates: start: 20170720
  67. METHYLDOPA [Suspect]
     Active Substance: METHYLDOPA
     Indication: Diabetes mellitus
     Route: 065
     Dates: start: 20170720
  68. FERROUS SULFATE [Suspect]
     Active Substance: FERROUS SULFATE
     Indication: Normochromic normocytic anaemia
     Route: 065
     Dates: start: 20170313
  69. FERROUS SULFATE [Suspect]
     Active Substance: FERROUS SULFATE
     Route: 065
     Dates: start: 20170914
  70. FUROSEMIDE [Suspect]
     Active Substance: FUROSEMIDE
     Indication: Hypertension
     Route: 065
  71. GABAPENTIN [Suspect]
     Active Substance: GABAPENTIN
     Indication: Diabetic neuropathy
     Route: 065
     Dates: start: 20160930
  72. CHLORPROMAZINE HYDROCHLORIDE [Suspect]
     Active Substance: CHLORPROMAZINE HYDROCHLORIDE
     Indication: Product used for unknown indication
     Route: 065
     Dates: start: 20170722
  73. POLYETHYLENE GLYCOL 4000 [Suspect]
     Active Substance: POLYETHYLENE GLYCOL 4000
     Indication: Product used for unknown indication
     Route: 065
     Dates: start: 20170224
  74. NICOTINE [Suspect]
     Active Substance: NICOTINE
     Indication: Product used for unknown indication
     Route: 065
     Dates: start: 20170914
  75. LASIX [Suspect]
     Active Substance: FUROSEMIDE
     Indication: Product used for unknown indication
     Route: 065
     Dates: start: 20170914
  76. LASIX [Suspect]
     Active Substance: FUROSEMIDE
     Route: 065
  77. PROPRANOLOL HYDROCHLORIDE [Suspect]
     Active Substance: PROPRANOLOL HYDROCHLORIDE
     Indication: Hypertension
     Route: 065
     Dates: start: 20170516
  78. PROPRANOLOL HYDROCHLORIDE [Suspect]
     Active Substance: PROPRANOLOL HYDROCHLORIDE
     Route: 065

REACTIONS (5)
  - Premature delivery [Not Recovered/Not Resolved]
  - Exposure during pregnancy [Unknown]
  - Pregnancy [Unknown]
  - Foetal exposure during pregnancy [Unknown]
  - Maternal exposure during pregnancy [Recovered/Resolved]

NARRATIVE: CASE EVENT DATE: 20170914
